FAERS Safety Report 22090601 (Version 1)
Quarter: 2023Q1

REPORT INFORMATION
  Report Type: Spontaneous
  Country: US (occurrence: US)
  Receive Date: 20230313
  Receipt Date: 20230313
  Transmission Date: 20230417
  Serious: Yes (Hospitalization)
  Sender: FDA-Public Use
  Company Number: US-BoehringerIngelheim-2023-BI-224622

PATIENT

DRUGS (2)
  1. GILOTRIF [Suspect]
     Active Substance: AFATINIB
     Indication: Non-small cell lung cancer metastatic
  2. GILOTRIF [Suspect]
     Active Substance: AFATINIB
     Indication: Squamous cell carcinoma of lung

REACTIONS (2)
  - Diarrhoea [Unknown]
  - Rash [Unknown]
